FAERS Safety Report 5217936-4 (Version None)
Quarter: 2007Q1

REPORT INFORMATION
  Report Type: 
  Country: None (occurrence: None)
  Receive Date: 20061130
  Receipt Date: 20060918
  Transmission Date: 20070707
  Serious: Yes (Hospitalization, Other)
  Sender: FDA-Public Use
  Company Number: US200607000716

PATIENT
  Age: 70 Year
  Sex: Male
  Weight: 77.1 kg

DRUGS (3)
  1. ZYPREXA [Suspect]
     Dosage: 20 MG
     Dates: start: 20040813
  2. CARBAMAZEPINE [Concomitant]
  3. PREDNISONE TAB [Concomitant]

REACTIONS (5)
  - CEREBROVASCULAR ACCIDENT [None]
  - DIABETES MELLITUS [None]
  - DIABETIC COMA [None]
  - DIABETIC KETOACIDOSIS [None]
  - HYPERGLYCAEMIA [None]
